FAERS Safety Report 17206846 (Version 1)
Quarter: 2019Q4

REPORT INFORMATION
  Report Type: Spontaneous
  Country: DE (occurrence: DE)
  Receive Date: 20191227
  Receipt Date: 20191227
  Transmission Date: 20200122
  Serious: Yes (Life-Threatening, Hospitalization)
  Sender: FDA-Public Use
  Company Number: DE-TEVA-2019-DE-1157409

PATIENT
  Age: 92 Year
  Sex: Female

DRUGS (12)
  1. REMESTAN [Suspect]
     Active Substance: TEMAZEPAM
     Dosage: 20 MG, ACCIDENTAL INGESTION ON 15
  2. METOPROLOL. [Concomitant]
     Active Substance: METOPROLOL
     Dosage: 100 MG, 1-0-1-0
  3. LERCANIDIPIN [Concomitant]
     Active Substance: LERCANIDIPINE
     Dosage: 10 MILLIGRAM DAILY; 10 MG, 0-1-0-0
  4. RAMIPRIL. [Suspect]
     Active Substance: RAMIPRIL
     Dosage: 5 MG, ACCIDENTAL INGESTION ON OCT 15, 2017
  5. SPASMEX [Concomitant]
     Dosage: 15 MG, 2-0-1-0
  6. METOPROLOL. [Suspect]
     Active Substance: METOPROLOL
     Dosage: 95 MG, ACCIDENTAL INGESTION ON OCT 15, 2017
  7. CATAPRESAN [Suspect]
     Active Substance: CLONIDINE
     Dosage: 75 MG, ACCIDENTAL INGESTION ON 15/07/2017
  8. LISINOPRIL. [Concomitant]
     Active Substance: LISINOPRIL
     Dosage: 1 DOSAGE FORMS DAILY; 0-1-0-0
  9. TORASEMID [Concomitant]
     Active Substance: TORSEMIDE
     Dosage: 10 MILLIGRAM DAILY; 10 MG, 1-0-0-0
  10. EBRANTIL [Suspect]
     Active Substance: URAPIDIL
     Dosage: 60 MG, ACCIDENTAL INGESTION ON OCT 15, 2017
  11. OMEPRAZOL [Concomitant]
     Active Substance: OMEPRAZOLE
     Dosage: 1 DOSAGE FORMS DAILY; 1-0-0-0
  12. ASS 100 [Concomitant]
     Active Substance: ASPIRIN
     Dosage: 100 MILLIGRAM DAILY; 100 MG, 0-1-0-0

REACTIONS (2)
  - Hypotension [Unknown]
  - Wrong product administered [Unknown]

NARRATIVE: CASE EVENT DATE: 20171014
